FAERS Safety Report 6106775-8 (Version None)
Quarter: 2009Q1

REPORT INFORMATION
  Report Type: 
  Country: None (occurrence: None)
  Receive Date: 20090304
  Receipt Date: 20090216
  Transmission Date: 20090719
  Serious: Yes (Other)
  Sender: FDA-Public Use
  Company Number: 8043373

PATIENT
  Age: 74 Year
  Sex: Male

DRUGS (5)
  1. THEOPHYLLINE [Suspect]
     Indication: ASTHMA
  2. PREDNISOLONE TAB [Suspect]
     Indication: ASTHMA
  3. FLUTICASONE PROPIONATE [Concomitant]
  4. PMS-SODIUM CROMOGLYCATE [Concomitant]
  5. INHALED BETA-2 AGONIST [Concomitant]

REACTIONS (3)
  - ALLERGIC GRANULOMATOUS ANGIITIS [None]
  - HYPOAESTHESIA [None]
  - IIIRD NERVE PARALYSIS [None]
